FAERS Safety Report 7633172-6 (Version None)
Quarter: 2011Q3

REPORT INFORMATION
  Report Type: 
  Country: None (occurrence: None)
  Receive Date: 20110725
  Receipt Date: 20110720
  Transmission Date: 20111222
  Serious: Yes (Life-Threatening)
  Sender: FDA-Public Use
  Company Number: JP-PFIZER INC-2011164907

PATIENT
  Age: 36 Year
  Sex: Female

DRUGS (6)
  1. CLARITHROMYCIN [Concomitant]
     Indication: PHARYNGITIS
     Dosage: 200 MG, DAILY
     Route: 048
     Dates: start: 20110701
  2. LANSOPRAZOLE [Concomitant]
     Indication: PHARYNGITIS
     Dosage: 15 MG, DAILY
     Route: 048
     Dates: start: 20110701
  3. ALLEGRA [Concomitant]
     Indication: PHARYNGITIS
     Dosage: 60 MG, DAILY
     Route: 048
     Dates: start: 20110701
  4. CLINDAMYCIN HCL [Suspect]
     Indication: PHARYNGITIS
     Dosage: 600 MG, DAILY
     Route: 041
     Dates: start: 20110701
  5. ISEPACIN [Concomitant]
     Indication: PHARYNGITIS
     Dosage: 400 MG, DAILY
     Route: 041
     Dates: start: 20110701
  6. MONTELUKAST SODIUM [Concomitant]
     Indication: PHARYNGITIS
     Dosage: 10 MG, DAILY
     Route: 048
     Dates: start: 20110701

REACTIONS (2)
  - ERYTHEMA [None]
  - DYSPNOEA [None]
